FAERS Safety Report 24304698 (Version 3)
Quarter: 2025Q1

REPORT INFORMATION
  Report Type: Spontaneous
  Country: US (occurrence: US)
  Receive Date: 20240910
  Receipt Date: 20250223
  Transmission Date: 20250409
  Serious: No
  Sender: JOHNSON AND JOHNSON
  Company Number: US-JNJFOC-20240903040

PATIENT
  Age: 68 Year
  Sex: Male
  Weight: 98 kg

DRUGS (35)
  1. OPSUMIT [Suspect]
     Active Substance: MACITENTAN
     Indication: Product used for unknown indication
     Route: 048
  2. TYVASO DPI [Suspect]
     Active Substance: TREPROSTINIL
     Indication: Pulmonary arterial hypertension
     Route: 055
     Dates: start: 20240630
  3. TYVASO DPI [Suspect]
     Active Substance: TREPROSTINIL
     Route: 055
     Dates: start: 2024
  4. TYVASO DPI [Suspect]
     Active Substance: TREPROSTINIL
     Route: 055
     Dates: start: 2024, end: 2024
  5. TYVASO DPI [Suspect]
     Active Substance: TREPROSTINIL
     Route: 055
     Dates: start: 2024
  6. TYVASO DPI [Suspect]
     Active Substance: TREPROSTINIL
     Route: 055
     Dates: start: 20240620
  7. DEXTROSE [Concomitant]
     Active Substance: DEXTROSE MONOHYDRATE
  8. EPINEPHRINE HYDROCHLORIDE [Concomitant]
     Active Substance: EPINEPHRINE HYDROCHLORIDE
  9. ADVAIR HFA [Concomitant]
     Active Substance: FLUTICASONE PROPIONATE\SALMETEROL XINAFOATE
  10. CREON [Concomitant]
     Active Substance: PANCRELIPASE AMYLASE\PANCRELIPASE LIPASE\PANCRELIPASE PROTEASE
  11. SPIRIVA [Concomitant]
     Active Substance: TIOTROPIUM BROMIDE MONOHYDRATE
  12. BUMETANIDE [Concomitant]
     Active Substance: BUMETANIDE
  13. HYDROXYCHLOROQUINE SULFATE [Concomitant]
     Active Substance: HYDROXYCHLOROQUINE SULFATE
  14. ALLOPURINOL [Concomitant]
     Active Substance: ALLOPURINOL
  15. LANTUS SOLOSTAR [Concomitant]
     Active Substance: INSULIN GLARGINE
  16. FLONASE [Concomitant]
     Active Substance: FLUTICASONE PROPIONATE
  17. ALBUTEROL SULFATE [Concomitant]
     Active Substance: ALBUTEROL SULFATE
  18. TADALAFIL [Concomitant]
     Active Substance: TADALAFIL
  19. ATORVASTATIN CALCIUM [Concomitant]
     Active Substance: ATORVASTATIN CALCIUM
  20. BISACODYL [Concomitant]
     Active Substance: BISACODYL
  21. LISINOPRIL [Concomitant]
     Active Substance: LISINOPRIL
  22. ALOGLIPTIN [Concomitant]
     Active Substance: ALOGLIPTIN
  23. GLIPIZIDE [Concomitant]
     Active Substance: GLIPIZIDE
  24. METOPROLOL SUCCINATE [Concomitant]
     Active Substance: METOPROLOL SUCCINATE
  25. COLCHICINE [Concomitant]
     Active Substance: COLCHICINE
  26. SYNTHROID [Concomitant]
     Active Substance: LEVOTHYROXINE SODIUM
  27. SPIRONOLACTONE [Concomitant]
     Active Substance: SPIRONOLACTONE
  28. ASPIRIN [Concomitant]
     Active Substance: ASPIRIN
  29. CETIRIZINE HCL [Concomitant]
     Active Substance: CETIRIZINE HYDROCHLORIDE
  30. MONTELUKAST SODIUM [Concomitant]
     Active Substance: MONTELUKAST SODIUM
  31. STIOLTO RESPIMAT [Concomitant]
     Active Substance: OLODATEROL HYDROCHLORIDE\TIOTROPIUM BROMIDE MONOHYDRATE
  32. FERROUS SULFATE [Concomitant]
     Active Substance: FERROUS SULFATE
  33. LOPERAMIDE [Concomitant]
     Active Substance: LOPERAMIDE
  34. CHLORASEPTIC SORE THROAT [Concomitant]
     Active Substance: PHENOL
  35. OXYGEN [Concomitant]
     Active Substance: OXYGEN

REACTIONS (18)
  - Headache [Unknown]
  - Cough [Not Recovered/Not Resolved]
  - Productive cough [Unknown]
  - Fluid retention [Unknown]
  - Swelling [Unknown]
  - Laryngitis [Not Recovered/Not Resolved]
  - Abnormal loss of weight [Unknown]
  - Blood glucose decreased [Unknown]
  - Dizziness [Recovered/Resolved]
  - Pulmonary pain [Unknown]
  - Vomiting [Unknown]
  - Diarrhoea [Recovered/Resolved]
  - Abdominal discomfort [Unknown]
  - Mobility decreased [Unknown]
  - Stomatitis [Not Recovered/Not Resolved]
  - Oedema [Recovered/Resolved]
  - Oral herpes [Recovered/Resolved]
  - Product dose omission issue [Unknown]

NARRATIVE: CASE EVENT DATE: 20240101
